FAERS Safety Report 4339640-7 (Version None)
Quarter: 2004Q1

REPORT INFORMATION
  Report Type: 
  Country: None (occurrence: None)
  Receive Date: 20040329
  Receipt Date: 20040220
  Transmission Date: 20041129
  Serious: No
  Sender: FDA-Public Use
  Company Number: 04P-163-0251036-00

PATIENT
  Age: 34 Year
  Sex: Female
  Weight: 68.0396 kg

DRUGS (4)
  1. HUMIRA [Suspect]
     Indication: RHEUMATOID ARTHRITIS
     Dosage: 40 MG, 1 IN 2 WK, SUBCUTANEOUS
     Route: 058
     Dates: start: 20040217
  2. AZATHIOPRINE [Concomitant]
  3. PREDNISONE [Concomitant]
  4. CYCLOBENZAPRINE HYDROCHLORIDE [Concomitant]

REACTIONS (3)
  - DECREASED APPETITE [None]
  - DIZZINESS [None]
  - NAUSEA [None]
